FAERS Safety Report 20687490 (Version 24)
Quarter: 2024Q1

REPORT INFORMATION
  Report Type: Spontaneous
  Country: CA (occurrence: CA)
  Receive Date: 20220408
  Receipt Date: 20240226
  Transmission Date: 20240410
  Serious: Yes (Other)
  Sender: FDA-Public Use
  Company Number: CA-CELLTRION INC.-2021CA013042

PATIENT

DRUGS (33)
  1. INFLECTRA [Suspect]
     Active Substance: INFLIXIMAB-DYYB
     Indication: Colitis ulcerative
     Dosage: 700 MG, WEEK 0-2-6 AND THEN Q 8 WEEKS
     Route: 042
     Dates: start: 20210826
  2. INFLECTRA [Suspect]
     Active Substance: INFLIXIMAB-DYYB
     Dosage: 700 MG, WEEK 0-2-6 AND THEN Q 8 WEEKS
     Route: 042
     Dates: start: 20210909
  3. INFLECTRA [Suspect]
     Active Substance: INFLIXIMAB-DYYB
     Dosage: 5 MG/KG, WEEK 0-2-6 AND THEN Q 8 WEEKS
     Route: 042
     Dates: start: 20220405
  4. INFLECTRA [Suspect]
     Active Substance: INFLIXIMAB-DYYB
     Dosage: 5 MG/KG, WEEK 0-2-6 AND THEN Q 8 WEEKS
     Route: 042
     Dates: start: 20220418
  5. INFLECTRA [Suspect]
     Active Substance: INFLIXIMAB-DYYB
     Dosage: 5 MG/KG, WEEK 0-2-6 AND THEN Q 8 WEEKS
     Route: 042
     Dates: start: 20220516
  6. INFLECTRA [Suspect]
     Active Substance: INFLIXIMAB-DYYB
     Dosage: 5 MG/KG, WEEK 0-2-6 AND THEN Q 8 WEEKS
     Route: 042
     Dates: start: 20220711
  7. INFLECTRA [Suspect]
     Active Substance: INFLIXIMAB-DYYB
     Dosage: 500 MG, Q 4 WEEKS
     Route: 042
     Dates: start: 20220815
  8. INFLECTRA [Suspect]
     Active Substance: INFLIXIMAB-DYYB
     Dosage: 7.5 MG/KG, Q 4 WEEKS
     Route: 042
     Dates: start: 20220913
  9. INFLECTRA [Suspect]
     Active Substance: INFLIXIMAB-DYYB
     Dosage: 7.5 MG/KG, Q 4 WEEKS
     Route: 042
     Dates: start: 20221011
  10. INFLECTRA [Suspect]
     Active Substance: INFLIXIMAB-DYYB
     Dosage: 7.5 MG/KG, Q 4 WEEKS
     Route: 042
     Dates: start: 20221110
  11. INFLECTRA [Suspect]
     Active Substance: INFLIXIMAB-DYYB
     Dosage: 7.5 MG/KG, Q 4 WEEKS
     Route: 042
     Dates: start: 20221212
  12. INFLECTRA [Suspect]
     Active Substance: INFLIXIMAB-DYYB
     Dosage: 7.5 MG/KG, Q 4 WEEKS
     Route: 042
     Dates: start: 20230105
  13. INFLECTRA [Suspect]
     Active Substance: INFLIXIMAB-DYYB
     Dosage: 7.5 MG/KG , Q 4 WEEKS
     Route: 042
     Dates: start: 20230202
  14. INFLECTRA [Suspect]
     Active Substance: INFLIXIMAB-DYYB
     Dosage: 495 MG (7.5MG/KG) Q 4 WEEKS
     Route: 042
     Dates: start: 20230302, end: 20230302
  15. INFLECTRA [Suspect]
     Active Substance: INFLIXIMAB-DYYB
     Dosage: 457.5 MG (7.5MG/KG) Q 4 WEEKS
     Route: 042
     Dates: start: 20230330
  16. INFLECTRA [Suspect]
     Active Substance: INFLIXIMAB-DYYB
     Dosage: 7.5 MG/KG, Q 4 WEEKS
     Route: 042
     Dates: start: 20230525
  17. INFLECTRA [Suspect]
     Active Substance: INFLIXIMAB-DYYB
     Dosage: 487.5 MG (7.5MG/KG), EVERY 4 WEEKS
     Route: 042
     Dates: start: 20230622
  18. INFLECTRA [Suspect]
     Active Substance: INFLIXIMAB-DYYB
     Dosage: 487.5 MG, Q 4 WEEKS
     Route: 042
     Dates: start: 20230721
  19. INFLECTRA [Suspect]
     Active Substance: INFLIXIMAB-DYYB
     Dosage: 487.5 MG, Q 4 WEEKS
     Route: 042
     Dates: start: 20231207
  20. INFLECTRA [Suspect]
     Active Substance: INFLIXIMAB-DYYB
     Dosage: 7500 UG, AFTER 6 WEEKS
     Route: 042
     Dates: start: 20240118
  21. INFLECTRA [Suspect]
     Active Substance: INFLIXIMAB-DYYB
     Dosage: 7500 UG, EVERY 4 WEEK (517.5 MG, 4 WEEKS)
     Route: 042
     Dates: start: 20240215
  22. ACETAMINOPHEN [Concomitant]
     Active Substance: ACETAMINOPHEN
     Dosage: 1000 MG
     Route: 048
  23. AZATHIOPRINE [Concomitant]
     Active Substance: AZATHIOPRINE
     Dosage: 150 MG
     Route: 048
  24. AZATHIOPRINE [Concomitant]
     Active Substance: AZATHIOPRINE
     Dosage: 1 DF
     Dates: start: 20220325
  25. DILAUDID [Concomitant]
     Active Substance: HYDROMORPHONE HYDROCHLORIDE
     Dosage: 1 MG
     Route: 048
  26. ENTOCORT [Concomitant]
     Active Substance: BUDESONIDE
     Dosage: 2.3 MG
     Route: 055
  27. IMURAN [Concomitant]
     Active Substance: AZATHIOPRINE
     Dosage: 150 MG
     Route: 048
  28. METAMUCIL THERAPY FOR REGULARITY [Concomitant]
     Active Substance: PSYLLIUM HUSK
     Dosage: 1 DF
     Route: 048
  29. TRIAMCINOLONE ACETONIDE [Concomitant]
     Active Substance: TRIAMCINOLONE ACETONIDE
     Dosage: 1 DF
  30. PREDNISONE [Concomitant]
     Active Substance: PREDNISONE
     Dosage: 1 DF, DOSAGE NOT AVAILABLE
     Route: 065
  31. PROTOPIC [Concomitant]
     Active Substance: TACROLIMUS
     Dosage: 1 DF
  32. MORPHINE SULFATE [Concomitant]
     Active Substance: MORPHINE SULFATE
     Dosage: 5 MG, AS NEEDED
     Route: 048
  33. VENLAFAXINE [Concomitant]
     Active Substance: VENLAFAXINE HYDROCHLORIDE
     Dosage: 112.5 MG
     Route: 048

REACTIONS (24)
  - Pyoderma gangrenosum [Not Recovered/Not Resolved]
  - Sinusitis bacterial [Recovered/Resolved]
  - Colectomy [Unknown]
  - Stoma creation [Unknown]
  - Sinusitis bacterial [Recovered/Resolved]
  - Nasopharyngitis [Recovered/Resolved]
  - Nasal congestion [Recovered/Resolved]
  - Headache [Recovered/Resolved]
  - Fatigue [Recovered/Resolved]
  - Increased upper airway secretion [Recovered/Resolved]
  - Oropharyngeal pain [Recovered/Resolved]
  - Condition aggravated [Recovered/Resolved]
  - Oral herpes [Recovering/Resolving]
  - Weight decreased [Recovering/Resolving]
  - Rhinorrhoea [Recovering/Resolving]
  - Cough [Recovering/Resolving]
  - Malaise [Unknown]
  - Headache [Recovered/Resolved]
  - Fatigue [Not Recovered/Not Resolved]
  - Dizziness [Not Recovered/Not Resolved]
  - Stress [Not Recovered/Not Resolved]
  - Off label use [Unknown]
  - Off label use [Unknown]
  - Intentional product use issue [Unknown]

NARRATIVE: CASE EVENT DATE: 20210901
